FAERS Safety Report 23387477 (Version 1)
Quarter: 2024Q1

REPORT INFORMATION
  Report Type: Report from Study
  Country: US (occurrence: US)
  Receive Date: 20240110
  Receipt Date: 20240110
  Transmission Date: 20240410
  Serious: Yes (Hospitalization, Other)
  Sender: FDA-Public Use
  Company Number: US-PFIZER INC-PV202400001772

PATIENT
  Age: 81 Year
  Sex: Female
  Weight: 71.7 kg

DRUGS (28)
  1. SPIRONOLACTONE [Suspect]
     Active Substance: SPIRONOLACTONE
     Indication: Product used for unknown indication
     Dosage: UNK
  2. REMODULIN [Suspect]
     Active Substance: TREPROSTINIL
     Indication: Pulmonary arterial hypertension
     Dosage: 0.014 UG/KG (SELF-FILL WITH 2.2 ML/CASSETTE, RATE OF 24 MCL/HOUR)
     Route: 058
     Dates: start: 202311
  3. REMODULIN [Suspect]
     Active Substance: TREPROSTINIL
     Dosage: 0.017 UG/KG (SELF-FILL WITH 3 ML/CASSETTE, RATE OF 29 MCL/HR)
     Route: 058
     Dates: start: 202311
  4. REMODULIN [Suspect]
     Active Substance: TREPROSTINIL
     Dosage: 0.018 UG/KG (PHARMACY-FILLED PUMP WITH 2 ML PER CASSETTE, PUMP RATE OF 16 MCL/HOUR)
     Route: 058
     Dates: start: 2023
  5. REMODULIN [Suspect]
     Active Substance: TREPROSTINIL
     Dosage: 0.019 UG/KG (PHARMACY PRE-FILLED WITH 3 ML/CASSETTE; PUMP RATE OF 33 MCL/HR)
     Route: 058
     Dates: start: 2023
  6. REMODULIN [Suspect]
     Active Substance: TREPROSTINIL
     Dosage: UNK
     Route: 058
     Dates: start: 20231113
  7. REMODULIN [Suspect]
     Active Substance: TREPROSTINIL
     Dosage: UNK (AT A PUMP RATE 17 MCL)
     Route: 058
     Dates: start: 202311
  8. REMODULIN [Suspect]
     Active Substance: TREPROSTINIL
     Dosage: 0.018 UG/KG, CONTINUING (PHARMACY PRE-FILLED WITH 3 ML/ CASSETTE AND 2.5 ML/CASSETTE; PUMP RATE OF 3
     Route: 058
     Dates: start: 2023
  9. REMODULIN [Suspect]
     Active Substance: TREPROSTINIL
     Dosage: UNK
     Route: 058
     Dates: start: 202311
  10. REMODULIN [Suspect]
     Active Substance: TREPROSTINIL
     Dosage: UNK
     Route: 058
     Dates: start: 2023
  11. LASIX [Suspect]
     Active Substance: FUROSEMIDE
     Indication: Product used for unknown indication
     Dosage: UNK
     Dates: end: 20231214
  12. METHOCARBAMOL [Concomitant]
     Active Substance: METHOCARBAMOL
     Dosage: UNK
  13. COLCHICINE [Concomitant]
     Active Substance: COLCHICINE
     Dosage: UNK
  14. TYLENOL EXTRA STRENGTH [Concomitant]
     Active Substance: ACETAMINOPHEN
     Dosage: UNK
  15. SODIUM CHLORIDE [Concomitant]
     Active Substance: SODIUM CHLORIDE
     Dosage: UNK
  16. BUTALBITAL [Concomitant]
     Active Substance: BUTALBITAL
     Dosage: UNK
  17. ASPIRIN [Concomitant]
     Active Substance: ASPIRIN
     Dosage: UNK
  18. CAFFEINE CITRATE [Concomitant]
     Active Substance: CAFFEINE CITRATE
     Dosage: UNK
  19. CYANOCOBALAMIN (57 CO) [Concomitant]
     Dosage: UNK
  20. PANTOPRAZOLE SODIUM [Concomitant]
     Active Substance: PANTOPRAZOLE SODIUM
     Dosage: UNK
  21. ALBUTEROL SULFATE [Concomitant]
     Active Substance: ALBUTEROL SULFATE
     Dosage: UNK
  22. LINZESS [Concomitant]
     Active Substance: LINACLOTIDE
     Dosage: UNK
  23. CITALOPRAM [Concomitant]
     Active Substance: CITALOPRAM HYDROBROMIDE
     Dosage: UNK
  24. LEVOTHYROXINE SODIUM [Concomitant]
     Active Substance: LEVOTHYROXINE SODIUM
     Dosage: UNK
  25. ONDANSETRON HYDROCHLORIDE [Concomitant]
     Active Substance: ONDANSETRON HYDROCHLORIDE
     Dosage: UNK
  26. ROSUVASTATIN CALCIUM [Concomitant]
     Active Substance: ROSUVASTATIN CALCIUM
     Dosage: UNK
  27. CEFDINIR [Concomitant]
     Active Substance: CEFDINIR
     Dosage: UNK
  28. BUSPIRONE HCL [Concomitant]
     Active Substance: BUSPIRONE HYDROCHLORIDE
     Dosage: UNK

REACTIONS (22)
  - Hypotension [Recovered/Resolved]
  - Urinary tract infection [Unknown]
  - Dizziness [Unknown]
  - Dyspnoea [Unknown]
  - Oedema peripheral [Unknown]
  - Pain in jaw [Unknown]
  - Infusion site erythema [Unknown]
  - Tremor [Unknown]
  - Back pain [Unknown]
  - Diarrhoea [Unknown]
  - Chills [Unknown]
  - Asthenia [Unknown]
  - Pain [Unknown]
  - Dyspnoea exertional [Unknown]
  - Anxiety [Unknown]
  - Fatigue [Unknown]
  - Oxygen consumption increased [Unknown]
  - Feeling abnormal [Unknown]
  - Weight increased [Unknown]
  - Infusion site haemorrhage [Unknown]
  - Infusion site pain [Unknown]
  - Infusion site discomfort [Unknown]

NARRATIVE: CASE EVENT DATE: 20231213
